FAERS Safety Report 9140923 (Version 1)
Quarter: 2013Q1

REPORT INFORMATION
  Report Type: Spontaneous
  Country: US (occurrence: US)
  Receive Date: 20130305
  Receipt Date: 20130305
  Transmission Date: 20140127
  Serious: No
  Sender: FDA-Public Use
  Company Number: US-009507513-1303USA000385

PATIENT
  Sex: 0

DRUGS (2)
  1. CLARITIN [Suspect]
     Route: 048
  2. ZYRTEC [Suspect]

REACTIONS (1)
  - Drug ineffective [Unknown]
